FAERS Safety Report 7130634-5 (Version None)
Quarter: 2010Q4

REPORT INFORMATION
  Report Type: 
  Country: None (occurrence: None)
  Receive Date: 20101201
  Receipt Date: 20101117
  Transmission Date: 20110411
  Serious: Yes (Other)
  Sender: FDA-Public Use
  Company Number: JP-SANOFI-AVENTIS-2010SA071736

PATIENT
  Age: 68 Year
  Sex: Male

DRUGS (6)
  1. OXALIPLATIN [Suspect]
     Indication: COLON CANCER
     Route: 041
     Dates: start: 20090101, end: 20090101
  2. OXALIPLATIN [Suspect]
     Route: 041
     Dates: start: 20100301, end: 20100301
  3. CALCIUM LEVOFOLINATE [Suspect]
     Indication: COLON CANCER
     Route: 041
     Dates: start: 20090101, end: 20090101
  4. CALCIUM LEVOFOLINATE [Suspect]
     Route: 041
     Dates: start: 20100301, end: 20100301
  5. FLUOROURACIL [Suspect]
     Indication: COLON CANCER
     Route: 041
     Dates: start: 20090101, end: 20090101
  6. FLUOROURACIL [Suspect]
     Route: 041
     Dates: start: 20100301, end: 20100301

REACTIONS (1)
  - DUODENAL PERFORATION [None]
